FAERS Safety Report 20802841 (Version 1)
Quarter: 2022Q2

REPORT INFORMATION
  Report Type: Spontaneous
  Country: US (occurrence: None)
  Receive Date: 20220509
  Receipt Date: 20220509
  Transmission Date: 20220721
  Serious: Yes (Hospitalization, Disabling, Other)
  Sender: FDA-Public Use
  Company Number: None

PATIENT
  Age: 75 Year
  Sex: Female
  Weight: 60.75 kg

DRUGS (13)
  1. LEVAQUIN [Suspect]
     Active Substance: LEVOFLOXACIN
     Indication: Urinary tract infection
     Dosage: FREQUENCY : DAILY;?
     Route: 048
  2. LISINOPRIL [Concomitant]
     Active Substance: LISINOPRIL
  3. FLUTICASONE [Concomitant]
     Active Substance: FLUTICASONE
  4. COENZYME Q10 [Concomitant]
     Active Substance: DIETARY SUPPLEMENT\UBIDECARENONE
  5. D- mannose [Concomitant]
  6. NADH [Concomitant]
     Active Substance: NADH
  7. PQQ [Concomitant]
  8. NT factor [Concomitant]
  9. D ribose [Concomitant]
  10. MAGNESIUM [Concomitant]
     Active Substance: MAGNESIUM
  11. VITAMIN B COMPLEX [Concomitant]
     Active Substance: CYANOCOBALAMIN\DEXPANTHENOL\NIACINAMIDE\PYRIDOXINE HYDROCHLORIDE\RIBOFLAVIN 5^-PHOSPHATE SODIUM\THIA
  12. VITAMIN D NOS [Concomitant]
     Active Substance: VITAMIN D NOS
  13. DIETARY SUPPLEMENT [Concomitant]
     Active Substance: DIETARY SUPPLEMENT

REACTIONS (15)
  - Neuropathy peripheral [None]
  - Headache [None]
  - Toxicity to various agents [None]
  - Toxic encephalopathy [None]
  - Migraine [None]
  - Post viral fatigue syndrome [None]
  - Chronic fatigue syndrome [None]
  - Tendon disorder [None]
  - Gastrointestinal disorder [None]
  - Autonomic nervous system imbalance [None]
  - Dyspnoea [None]
  - Food allergy [None]
  - Drug hypersensitivity [None]
  - Muscular weakness [None]
  - Quality of life decreased [None]

NARRATIVE: CASE EVENT DATE: 20190920
